FAERS Safety Report 21091277 (Version 19)
Quarter: 2025Q1

REPORT INFORMATION
  Report Type: Report from Study
  Country: US (occurrence: US)
  Receive Date: 20220716
  Receipt Date: 20250331
  Transmission Date: 20250408
  Serious: Yes (Life-Threatening, Hospitalization, Other)
  Sender: TAKEDA
  Company Number: US-TAKEDA-US201505170

PATIENT
  Age: 60 Year
  Sex: Female

DRUGS (5)
  1. VELAGLUCERASE ALFA [Suspect]
     Active Substance: VELAGLUCERASE ALFA
     Indication: Gaucher^s disease
  2. VELAGLUCERASE ALFA [Suspect]
     Active Substance: VELAGLUCERASE ALFA
     Dosage: 3200 INTERNATIONAL UNIT, 1/WEEK
     Dates: start: 20100712
  3. VELAGLUCERASE ALFA [Suspect]
     Active Substance: VELAGLUCERASE ALFA
  4. VELAGLUCERASE ALFA [Suspect]
     Active Substance: VELAGLUCERASE ALFA
  5. VELAGLUCERASE ALFA [Suspect]
     Active Substance: VELAGLUCERASE ALFA
     Dosage: UNK, Q2WEEKS

REACTIONS (12)
  - Blood pressure increased [Recovered/Resolved]
  - Suicidal ideation [Not Recovered/Not Resolved]
  - Illness [Unknown]
  - Perfume sensitivity [Not Recovered/Not Resolved]
  - Malaise [Unknown]
  - Product supply issue [Unknown]
  - Incorrect drug administration rate [Not Recovered/Not Resolved]
  - Product preparation error [Not Recovered/Not Resolved]
  - Dyspnoea [Unknown]
  - Insurance issue [Not Recovered/Not Resolved]
  - Inappropriate schedule of product administration [Not Recovered/Not Resolved]
  - Product dose omission issue [Not Recovered/Not Resolved]

NARRATIVE: CASE EVENT DATE: 20150601
